FAERS Safety Report 9508689 (Version 2)
Quarter: 2013Q3

REPORT INFORMATION
  Report Type: Spontaneous
  Country: FR (occurrence: FR)
  Receive Date: 20130909
  Receipt Date: 20130909
  Transmission Date: 20140515
  Serious: Yes (Death, Other)
  Sender: FDA-Public Use
  Company Number: FR-TEVA-412947ISR

PATIENT
  Sex: Female

DRUGS (2)
  1. FUROSEMIDE [Suspect]
     Indication: CARDIAC FAILURE
  2. FUROSEMIDE [Suspect]

REACTIONS (3)
  - Death [Fatal]
  - Acute pulmonary oedema [Recovered/Resolved]
  - Cardiac failure [Unknown]
